FAERS Safety Report 18387182 (Version 8)
Quarter: 2023Q2

REPORT INFORMATION
  Report Type: Report from Study
  Country: SG (occurrence: SG)
  Receive Date: 20201015
  Receipt Date: 20230615
  Transmission Date: 20230721
  Serious: Yes (Hospitalization)
  Sender: FDA-Public Use
  Company Number: NVSC2020SG274985

PATIENT
  Age: 19 Year
  Sex: Female
  Weight: 49 kg

DRUGS (33)
  1. RITUXIMAB [Suspect]
     Active Substance: RITUXIMAB
     Indication: B-cell lymphoma refractory
     Dosage: 600 MG, ONCE
     Route: 042
     Dates: start: 20200831
  2. IFOSFAMIDE [Suspect]
     Active Substance: IFOSFAMIDE
     Indication: B-cell lymphoma refractory
     Dosage: 7750 MG, CONT (CONTINUOUS INFUSION 24 H)
     Route: 042
     Dates: start: 20200901
  3. ETOPOSIDE [Suspect]
     Active Substance: ETOPOSIDE
     Indication: B-cell lymphoma refractory
     Dosage: 465 MG, QD
     Route: 042
     Dates: start: 20200831
  4. MESNA [Suspect]
     Active Substance: MESNA
     Indication: B-cell lymphoma refractory
     Dosage: 11625 MG, CONT (CONTINUOUS INFUSION 24 H)
     Route: 042
     Dates: start: 20200901
  5. PEGFILGRASTIM [Concomitant]
     Active Substance: PEGFILGRASTIM
     Indication: Prophylaxis
     Dosage: UNK
     Route: 065
     Dates: start: 20200925, end: 20200925
  6. ACYCLOVIR [Concomitant]
     Active Substance: ACYCLOVIR
     Indication: Antiviral prophylaxis
     Dosage: UNK
     Route: 065
     Dates: start: 20200831
  7. DEXAMETHASONE PHOSPHATE [Concomitant]
     Active Substance: DEXAMETHASONE PHOSPHATE
     Indication: Premedication
     Dosage: UNK
     Route: 065
     Dates: start: 20200921, end: 20200923
  8. DIPHENHYDRAMINE HYDROCHLORIDE [Concomitant]
     Active Substance: DIPHENHYDRAMINE HYDROCHLORIDE
     Indication: Premedication
     Dosage: UNK
     Route: 065
     Dates: start: 20200921, end: 20200921
  9. DIPHENHYDRAMINE HYDROCHLORIDE [Concomitant]
     Active Substance: DIPHENHYDRAMINE HYDROCHLORIDE
     Dosage: UNK
     Route: 065
     Dates: start: 20201013, end: 20201013
  10. GRANISETRON [Concomitant]
     Active Substance: GRANISETRON
     Indication: Premedication
     Dosage: UNK
     Route: 065
     Dates: start: 20200921, end: 20200923
  11. GRANISETRON [Concomitant]
     Active Substance: GRANISETRON
     Dosage: UNK
     Route: 065
     Dates: start: 20201013, end: 20201014
  12. HYDROCORTISONE [Concomitant]
     Active Substance: HYDROCORTISONE
     Indication: Premedication
     Dosage: UNK
     Route: 065
     Dates: start: 20200921, end: 20200921
  13. KETOPROFEN [Concomitant]
     Active Substance: KETOPROFEN
     Indication: Pain
     Dosage: PLASTER
     Route: 065
     Dates: start: 20200921, end: 20201105
  14. PREGABALIN [Concomitant]
     Active Substance: PREGABALIN
     Indication: Pain prophylaxis
     Dosage: UNK
     Route: 065
     Dates: start: 20200906
  15. COTRIMOXAZOLE [Concomitant]
     Active Substance: SULFAMETHOXAZOLE\TRIMETHOPRIM
     Indication: Antibiotic prophylaxis
     Dosage: UNK
     Route: 065
     Dates: start: 20200831
  16. CIPROFLOXACIN [Concomitant]
     Active Substance: CIPROFLOXACIN
     Indication: Antibiotic prophylaxis
     Dosage: UNK
     Route: 065
     Dates: start: 20201002, end: 20201004
  17. CIPROFLOXACIN [Concomitant]
     Active Substance: CIPROFLOXACIN
     Dosage: UNK
     Route: 065
     Dates: start: 20201010, end: 20201010
  18. NEUROBION [Concomitant]
     Active Substance: CYANOCOBALAMIN\PYRIDOXINE\THIAMINE
     Indication: General physical condition
     Dosage: UNK
     Route: 065
     Dates: start: 20200902
  19. TRAMADOL HCL [Concomitant]
     Active Substance: TRAMADOL HYDROCHLORIDE
     Indication: Pain
     Dosage: UNK
     Route: 065
     Dates: start: 20200921, end: 20201001
  20. TRAMADOL HCL [Concomitant]
     Active Substance: TRAMADOL HYDROCHLORIDE
     Dosage: UNK
     Route: 065
     Dates: start: 20201002
  21. LEUPROLIDE ACETATE [Concomitant]
     Active Substance: LEUPROLIDE ACETATE
     Indication: Ovarian repair
     Dosage: UNK
     Route: 065
     Dates: start: 20200831
  22. SODIUM CHLORIDE [Concomitant]
     Active Substance: SODIUM CHLORIDE
     Indication: Presyncope
     Dosage: UNK
     Route: 042
     Dates: start: 20200925, end: 20200925
  23. POTASSIUM CHLORIDE [Concomitant]
     Active Substance: POTASSIUM CHLORIDE
     Indication: Mineral supplementation
     Dosage: UNK
     Route: 065
     Dates: start: 20200924, end: 20200926
  24. ACETAMINOPHEN [Concomitant]
     Active Substance: ACETAMINOPHEN
     Indication: Premedication
     Dosage: UNK
     Route: 065
     Dates: start: 20200920
  25. ACETAMINOPHEN [Concomitant]
     Active Substance: ACETAMINOPHEN
     Indication: Pain
     Dosage: UNK
     Route: 065
     Dates: start: 20200921, end: 20200921
  26. ORALSEVEN [Concomitant]
     Indication: Prophylaxis
     Dosage: UNK
     Route: 065
     Dates: start: 20200922, end: 20200926
  27. ORALSEVEN [Concomitant]
     Dosage: UNK
     Route: 065
     Dates: start: 20201010, end: 20210112
  28. METOCLOPRAMIDE HYDROCHLORIDE [Concomitant]
     Active Substance: METOCLOPRAMIDE HYDROCHLORIDE
     Indication: Vomiting
     Dosage: UNK
     Route: 065
     Dates: start: 20201010, end: 20201031
  29. DEXAMETHASONE [Concomitant]
     Active Substance: DEXAMETHASONE
     Indication: Prophylaxis of nausea and vomiting
     Dosage: UNK
     Route: 065
     Dates: start: 20200924, end: 20200927
  30. ALBUTEROL [Concomitant]
     Active Substance: ALBUTEROL
     Indication: Dyspnoea
     Dosage: UNK
     Route: 065
     Dates: start: 20200822, end: 20201031
  31. SENNOSIDES [Concomitant]
     Active Substance: SENNOSIDES
     Indication: Constipation prophylaxis
     Dosage: UNK
     Route: 065
     Dates: start: 20200901, end: 20201031
  32. AQUEOUS CREAM [Concomitant]
     Indication: Dry skin prophylaxis
     Dosage: UNK
     Route: 065
     Dates: start: 20201010, end: 20201031
  33. LACTULOSE [Concomitant]
     Active Substance: LACTULOSE
     Indication: Constipation prophylaxis
     Dosage: UNK
     Route: 065
     Dates: start: 20201010, end: 20201031

REACTIONS (1)
  - Presyncope [Recovered/Resolved]

NARRATIVE: CASE EVENT DATE: 20201010
